FAERS Safety Report 8330861-5 (Version None)
Quarter: 2012Q2

REPORT INFORMATION
  Report Type: 
  Country: None (occurrence: None)
  Receive Date: 20120502
  Receipt Date: 20120402
  Transmission Date: 20120825
  Serious: No
  Sender: FDA-Public Use
  Company Number: US-AMGEN-USASP2011020614

PATIENT
  Sex: Female

DRUGS (3)
  1. SUBUTEX [Concomitant]
     Dosage: 12 MG, QD
  2. ENBREL [Suspect]
     Indication: ANKYLOSING SPONDYLITIS
     Dosage: 50 MG, QWK
     Route: 058
     Dates: start: 20101201, end: 20110201
  3. PRENATAL VITAMINS                  /01549301/ [Concomitant]

REACTIONS (3)
  - VOMITING [None]
  - NAUSEA [None]
  - ANKYLOSING SPONDYLITIS [None]
